FAERS Safety Report 5210829-8 (Version None)
Quarter: 2007Q1

REPORT INFORMATION
  Report Type: 
  Country: None (occurrence: None)
  Receive Date: 20070117
  Receipt Date: 20070105
  Transmission Date: 20070707
  Serious: Yes (Other)
  Sender: FDA-Public Use
  Company Number: US-PFIZER INC-2006144282

PATIENT
  Sex: Male
  Weight: 8 kg

DRUGS (1)
  1. ZYRTEC [Suspect]
     Indication: GASTROOESOPHAGEAL REFLUX DISEASE
     Route: 048
     Dates: start: 20060811, end: 20060826

REACTIONS (3)
  - DRUG INEFFECTIVE [None]
  - INSOMNIA [None]
  - WRONG DRUG ADMINISTERED [None]
